FAERS Safety Report 6079159-9 (Version None)
Quarter: 2009Q1

REPORT INFORMATION
  Report Type: 
  Country: None (occurrence: None)
  Receive Date: 20090216
  Receipt Date: 20090206
  Transmission Date: 20090719
  Serious: Yes (Death, Hospitalization)
  Sender: FDA-Public Use
  Company Number: A0768712A

PATIENT
  Age: 59 Year
  Sex: Male
  Weight: 89.1 kg

DRUGS (6)
  1. AVANDIA [Suspect]
     Dosage: 8MG PER DAY
     Route: 065
     Dates: start: 20010317, end: 20061215
  2. METFORMIN HCL [Concomitant]
     Dates: start: 20051216
  3. HUMALOG [Concomitant]
     Dates: start: 20010517, end: 20031015
  4. REGULAR INSULIN [Concomitant]
     Dates: start: 19971231, end: 20051215
  5. INSULATARD NPH HUMAN [Concomitant]
     Dates: start: 19971231, end: 20060427
  6. LANTUS [Concomitant]
     Dates: start: 20020529, end: 20061204

REACTIONS (6)
  - BLOOD CHOLESTEROL INCREASED [None]
  - BLOOD GLUCOSE INCREASED [None]
  - BLOOD PRESSURE INCREASED [None]
  - CEREBROVASCULAR ACCIDENT [None]
  - RENAL FAILURE [None]
  - TYPE 2 DIABETES MELLITUS [None]
